FAERS Safety Report 11059168 (Version 1)
Quarter: 2015Q2

REPORT INFORMATION
  Report Type: Report from Study
  Country: BR (occurrence: BR)
  Receive Date: 20150423
  Receipt Date: 20150423
  Transmission Date: 20150821
  Serious: Yes (Disabling, Other)
  Sender: FDA-Public Use
  Company Number: PHHY2015BR043600

PATIENT
  Sex: Male
  Weight: 47 kg

DRUGS (1)
  1. ACLASTA [Suspect]
     Active Substance: ZOLEDRONIC ACID
     Indication: OSTEOPOROSIS
     Dosage: 5 MG, (ONCE PER YEAR)
     Route: 065
     Dates: start: 201309

REACTIONS (5)
  - Gait disturbance [Unknown]
  - Spinal fracture [Recovered/Resolved]
  - Pain in extremity [Unknown]
  - Neuropathy peripheral [Unknown]
  - Fall [Unknown]
